FAERS Safety Report 18544924 (Version 3)
Quarter: 2022Q1

REPORT INFORMATION
  Report Type: Spontaneous
  Country: CA (occurrence: CA)
  Receive Date: 20201125
  Receipt Date: 20220107
  Transmission Date: 20220423
  Serious: Yes (Hospitalization, Other)
  Sender: FDA-Public Use
  Company Number: CA-ALLERGAN-2045588US

PATIENT
  Sex: Female
  Weight: 75.8 kg

DRUGS (7)
  1. FOSFOMYCIN TROMETHAMINE [Suspect]
     Active Substance: FOSFOMYCIN TROMETHAMINE
     Indication: Urinary tract infection
     Dosage: 1 DF, SINGLE
     Route: 048
     Dates: start: 20200228, end: 20200228
  2. MACROBID [Suspect]
     Active Substance: NITROFURANTOIN\NITROFURANTOIN MONOHYDRATE
     Indication: Product used for unknown indication
     Route: 065
  3. AMPICILLIN [Suspect]
     Active Substance: AMPICILLIN
     Indication: Product used for unknown indication
  4. GENTAMICIN [Suspect]
     Active Substance: GENTAMICIN
     Indication: Product used for unknown indication
     Dosage: UNK
     Route: 042
  5. KEFLEX [Suspect]
     Active Substance: CEPHALEXIN
     Indication: Product used for unknown indication
     Dosage: 500 MG, QID
     Route: 065
     Dates: start: 20200326
  6. BIO K PLUS [Concomitant]
     Indication: Antifungal prophylaxis
     Dosage: 2 CAPULES A DAY
     Route: 065
  7. VITAMINS [Concomitant]
     Active Substance: VITAMINS

REACTIONS (6)
  - Kidney infection [Unknown]
  - Retained placenta or membranes [Not Recovered/Not Resolved]
  - Caesarean section [Recovered/Resolved]
  - Uterine haematoma [Unknown]
  - Pregnancy [Unknown]
  - Drug ineffective [Unknown]

NARRATIVE: CASE EVENT DATE: 20200101
